FAERS Safety Report 11953414 (Version 1)
Quarter: 2016Q1

REPORT INFORMATION
  Report Type: Spontaneous
  Country: US (occurrence: US)
  Receive Date: 20160126
  Receipt Date: 20160126
  Transmission Date: 20160526
  Serious: No
  Sender: FDA-Public Use
  Company Number: US-DEXPHARM-20152333

PATIENT
  Age: 85 Year
  Sex: Female
  Weight: 70.29 kg

DRUGS (4)
  1. CALCIUM [Suspect]
     Active Substance: CALCIUM
     Indication: ROUTINE HEALTH MAINTENANCE
     Dosage: 1 TABLET, WEEKLY
     Route: 048
     Dates: start: 201509, end: 201510
  2. LEVOTHYROXINE. [Concomitant]
     Active Substance: LEVOTHYROXINE
     Indication: THYROID DISORDER
     Dosage: 75 MCG, UNKNOWN
     Route: 048
  3. OMEPRAZOLE DELAYED RELEASE [Suspect]
     Active Substance: OMEPRAZOLE
     Indication: GASTROOESOPHAGEAL REFLUX DISEASE
     Dosage: 40 MG, QD
     Route: 048
     Dates: start: 201508, end: 20151109
  4. XARELTO [Concomitant]
     Active Substance: RIVAROXABAN
     Indication: THROMBOSIS PROPHYLAXIS
     Dosage: 20 MG, UNKNOWN
     Route: 048
     Dates: start: 201505

REACTIONS (1)
  - Sensitivity of teeth [Not Recovered/Not Resolved]

NARRATIVE: CASE EVENT DATE: 2015
